FAERS Safety Report 5014375-6 (Version None)
Quarter: 2006Q2

REPORT INFORMATION
  Report Type: 
  Country: None (occurrence: None)
  Receive Date: 20060525
  Receipt Date: 20060515
  Transmission Date: 20061013
  Serious: Yes (Hospitalization)
  Sender: FDA-Public Use
  Company Number: HU200604000433

PATIENT
  Sex: Female

DRUGS (8)
  1. HUMULIN R [Suspect]
     Indication: DIABETES MELLITUS
     Dosage: SUBCUTANEOUS
     Route: 058
     Dates: start: 20000101
  2. HUMULIN N [Suspect]
     Indication: DIABETES MELLITUS
     Dosage: SUBCUTANEOUS
     Route: 058
     Dates: start: 20000101
  3. HP ERGO, BURGUNDY/CLEAR (HUMAPEN ERGO, BURGUNDY/CLEAR) PEN, REUSABLE [Concomitant]
  4. PENTOXIFYLLINE [Concomitant]
  5. CLONAZEPAM [Concomitant]
  6. CLOPIDOGREL (CLOPIDOGREL) [Concomitant]
  7. PAROXETINE [Concomitant]
  8. CALCIUM DOBESILATE (CALCIUM DOBESILATE) [Concomitant]

REACTIONS (1)
  - VASCULAR STENT INSERTION [None]
